FAERS Safety Report 9677519 (Version 1)
Quarter: 2013Q4

REPORT INFORMATION
  Report Type: Report from Study
  Country: DE (occurrence: DE)
  Receive Date: 20131108
  Receipt Date: 20131108
  Transmission Date: 20140711
  Serious: No
  Sender: FDA-Public Use
  Company Number: PHHY2013DE126366

PATIENT
  Sex: Female
  Weight: 75 kg

DRUGS (3)
  1. AMN107 [Suspect]
     Indication: CHRONIC MYELOID LEUKAEMIA
     Dosage: 400 MG, PER DAY
     Route: 048
     Dates: start: 20130912
  2. LOPEDIUM [Concomitant]
     Dates: start: 20120727
  3. PREDNICARBATE [Concomitant]
     Dates: start: 20131105

REACTIONS (1)
  - Rash [Not Recovered/Not Resolved]
